FAERS Safety Report 5503906-5 (Version None)
Quarter: 2007Q4

REPORT INFORMATION
  Report Type: 
  Country: None (occurrence: None)
  Receive Date: 20071030
  Receipt Date: 20071030
  Transmission Date: 20080405
  Serious: No
  Sender: FDA-Public Use
  Company Number: None

PATIENT
  Age: 47 Year
  Sex: Female
  Weight: 77.1115 kg

DRUGS (7)
  1. ZONISIMIDE CAPSULES 100 MG 100 MG. APOTEX USA [Suspect]
     Indication: ANTIPHOSPHOLIPID SYNDROME
     Dosage: 6 CAPSULES BY MOUTH AT BEDTIME
     Route: 048
     Dates: start: 20070716, end: 20070901
  2. ZONISIMIDE CAPSULES 100 MG 100 MG. APOTEX USA [Suspect]
     Indication: CONVULSION
     Dosage: 6 CAPSULES BY MOUTH AT BEDTIME
     Route: 048
     Dates: start: 20070716, end: 20070901
  3. ZONISIMIDE CAPSULES 100 MG 100 MG. APOTEX USA [Suspect]
     Indication: SYSTEMIC LUPUS ERYTHEMATOSUS
     Dosage: 6 CAPSULES BY MOUTH AT BEDTIME
     Route: 048
     Dates: start: 20070716, end: 20070901
  4. COUMADIN [Concomitant]
  5. CELEBREX [Concomitant]
  6. HYDROXYCHLOROQUIN SULFATE [Concomitant]
  7. KEPPRA [Concomitant]

REACTIONS (6)
  - DYSARTHRIA [None]
  - HALLUCINATION, AUDITORY [None]
  - HALLUCINATION, VISUAL [None]
  - MENTAL DISORDER [None]
  - THINKING ABNORMAL [None]
  - WEIGHT DECREASED [None]
